FAERS Safety Report 8876640 (Version 1)
Quarter: 2012Q4

REPORT INFORMATION
  Report Type: 
  Country: ES (occurrence: ES)
  Receive Date: 20121029
  Receipt Date: 20121029
  Transmission Date: 20130627
  Serious: Yes (Other)
  Sender: FDA-Public Use
  Company Number: PHHY2012ES096260

PATIENT
  Age: 81 Year
  Sex: Female

DRUGS (3)
  1. METHOTREXATE [Suspect]
     Indication: POLYARTHRITIS
     Dosage: 15 mg, QW
     Route: 048
  2. COLCHICINE [Concomitant]
  3. FOLIC ACID [Concomitant]

REACTIONS (3)
  - Bone marrow failure [Recovered/Resolved]
  - Arthritis [Recovered/Resolved]
  - Stomatitis [Recovered/Resolved]
